FAERS Safety Report 9580296 (Version 2)
Quarter: 2013Q4

REPORT INFORMATION
  Report Type: Spontaneous
  Country: FR (occurrence: FR)
  Receive Date: 20131002
  Receipt Date: 20131008
  Transmission Date: 20140711
  Serious: Yes (Hospitalization)
  Sender: FDA-Public Use
  Company Number: FR-NOVOPROD-388561

PATIENT
  Age: 47 Year
  Sex: Female

DRUGS (4)
  1. VICTOZA [Suspect]
     Indication: TYPE 2 DIABETES MELLITUS
     Dosage: 1.2 MG, QD
     Route: 058
     Dates: start: 201209
  2. CRESTOR [Suspect]
     Indication: DYSLIPIDAEMIA
     Dosage: 5 MG, QD
     Route: 048
     Dates: start: 201306, end: 20130830
  3. DEPAKINE                           /00228502/ [Concomitant]
  4. STRESAM [Concomitant]

REACTIONS (1)
  - Hepatitis acute [Recovering/Resolving]
